FAERS Safety Report 10133777 (Version 2)
Quarter: 2014Q2

REPORT INFORMATION
  Report Type: Spontaneous
  Country: US (occurrence: US)
  Receive Date: 20140428
  Receipt Date: 20140620
  Transmission Date: 20141212
  Serious: Yes (Hospitalization)
  Sender: FDA-Public Use
  Company Number: US-PFIZER INC-2014115195

PATIENT
  Age: 33 Year
  Sex: Male
  Weight: 128 kg

DRUGS (13)
  1. LYRICA [Suspect]
     Indication: FIBROMYALGIA
     Dosage: 75 MG, 2X/DAY
     Route: 048
     Dates: start: 2012
  2. PROTONIX [Suspect]
     Indication: GASTROOESOPHAGEAL REFLUX DISEASE
     Dosage: 40 MG, 1X/DAY
     Route: 048
  3. NORVASC [Concomitant]
     Dosage: UNK
  4. LOVASTATIN [Concomitant]
     Dosage: UNK
  5. METOPROLOL [Concomitant]
     Dosage: 200 MG, UNK
  6. HIDROCLOROTIAZIDE [Concomitant]
     Dosage: UNK
  7. AVAPRO [Concomitant]
     Dosage: UNK
  8. VIIBRYD [Concomitant]
     Dosage: UNK
  9. LIBRAX [Concomitant]
     Dosage: UNK
  10. CARAFATE [Concomitant]
     Dosage: UNK
  11. NORVIR [Concomitant]
     Dosage: UNK
  12. TRUVADA [Concomitant]
     Dosage: UNK
  13. PREZISTA [Concomitant]
     Dosage: UNK

REACTIONS (2)
  - Thrombosis [Unknown]
  - Peripheral swelling [Not Recovered/Not Resolved]
